FAERS Safety Report 17647594 (Version 1)
Quarter: 2020Q2

REPORT INFORMATION
  Report Type: Spontaneous
  Country: CN (occurrence: CN)
  Receive Date: 20200409
  Receipt Date: 20200409
  Transmission Date: 20200713
  Serious: Yes (Hospitalization, Other)
  Sender: FDA-Public Use
  Company Number: CN-ROCHE-2574100

PATIENT
  Age: 43 Year
  Sex: Female
  Weight: 48 kg

DRUGS (9)
  1. BEVACIZUMAB. [Suspect]
     Active Substance: BEVACIZUMAB
     Indication: METASTASES TO LYMPH NODES
  2. BEVACIZUMAB. [Suspect]
     Active Substance: BEVACIZUMAB
     Indication: ADENOCARCINOMA
     Route: 042
     Dates: start: 20200120, end: 20200121
  3. GLUCOSE [Suspect]
     Active Substance: DEXTROSE
     Indication: ADENOCARCINOMA
     Dosage: SOLVENT FOR OXALIPLATIN FOR INJECTION
     Route: 042
     Dates: start: 20200120, end: 20200121
  4. OXALIPLATIN. [Suspect]
     Active Substance: OXALIPLATIN
     Indication: ADENOCARCINOMA
     Route: 042
     Dates: start: 20200120, end: 20200121
  5. OXALIPLATIN. [Suspect]
     Active Substance: OXALIPLATIN
     Indication: METASTASES TO LYMPH NODES
  6. SODIUM CHLORIDE. [Concomitant]
     Active Substance: SODIUM CHLORIDE
     Dosage: SOLVENT FOR BEVACIZUMAB
     Route: 042
     Dates: start: 20200120, end: 20200121
  7. GLUCOSE [Suspect]
     Active Substance: DEXTROSE
     Indication: METASTASES TO LYMPH NODES
  8. XELODA [Suspect]
     Active Substance: CAPECITABINE
     Indication: ADENOCARCINOMA
     Route: 048
     Dates: start: 20200120, end: 20200202
  9. XELODA [Suspect]
     Active Substance: CAPECITABINE
     Indication: METASTASES TO LYMPH NODES

REACTIONS (2)
  - Bone marrow failure [Recovering/Resolving]
  - Neutrophil count abnormal [Recovered/Resolved]

NARRATIVE: CASE EVENT DATE: 20200312
